FAERS Safety Report 7293582-6 (Version None)
Quarter: 2011Q1

REPORT INFORMATION
  Report Type: 
  Country: None (occurrence: None)
  Receive Date: 20110215
  Receipt Date: 20110211
  Transmission Date: 20110831
  Serious: No
  Sender: FDA-Public Use
  Company Number: US-PFIZER INC-2011031401

PATIENT
  Sex: Male

DRUGS (1)
  1. VIAGRA [Suspect]
     Indication: ERECTILE DYSFUNCTION
     Dosage: 700 MG, UNK
     Route: 048

REACTIONS (3)
  - INCORRECT DOSE ADMINISTERED [None]
  - FLUSHING [None]
  - ABDOMINAL DISCOMFORT [None]
